FAERS Safety Report 21344414 (Version 1)
Quarter: 2022Q3

REPORT INFORMATION
  Report Type: Other
  Country: US (occurrence: US)
  Receive Date: 20220916
  Receipt Date: 20220916
  Transmission Date: 20221026
  Serious: No
  Sender: FDA-Public Use
  Company Number: US-LEADIANT BIOSCIENCES INC-2022STPI000162

PATIENT
  Sex: Female

DRUGS (1)
  1. MATULANE [Suspect]
     Active Substance: PROCARBAZINE HYDROCHLORIDE
     Indication: Brain neoplasm malignant
     Dosage: 50 MILLIGRAM, TAKE 2 CAPSULE (100MG TOTAL) DAILY ON DAYS 8-17 OF A 42 DAY CHEMOTHERAPY CYCLE
     Route: 048
     Dates: start: 20211103

REACTIONS (3)
  - Abdominal pain upper [Unknown]
  - White blood cell count decreased [Unknown]
  - Dry eye [Unknown]
